FAERS Safety Report 4305717-5 (Version None)
Quarter: 2004Q1

REPORT INFORMATION
  Report Type: 
  Country: None (occurrence: None)
  Receive Date: 20040225
  Receipt Date: 20040217
  Transmission Date: 20041129
  Serious: Yes (Death)
  Sender: FDA-Public Use
  Company Number: 163-20785-03120144

PATIENT
  Age: 84 Year
  Sex: Female

DRUGS (3)
  1. THALOMID [Suspect]
     Indication: ANAEMIA
     Dosage: 100 MG, QHS, ORAL
     Route: 048
     Dates: start: 20030903, end: 20031010
  2. THALOMID [Suspect]
     Indication: NEUTROPENIA
     Dosage: 100 MG, QHS, ORAL
     Route: 048
     Dates: start: 20030903, end: 20031010
  3. THALOMID [Suspect]
     Indication: PANCYTOPENIA
     Dosage: 100 MG, QHS, ORAL
     Route: 048
     Dates: start: 20030903, end: 20031010

REACTIONS (2)
  - ANAEMIA [None]
  - DISEASE PROGRESSION [None]
